FAERS Safety Report 6061354-6 (Version None)
Quarter: 2009Q1

REPORT INFORMATION
  Report Type: 
  Country: None (occurrence: None)
  Receive Date: 20090130
  Receipt Date: 20090130
  Transmission Date: 20090719
  Serious: Yes (Other)
  Sender: FDA-Public Use
  Company Number: None

PATIENT
  Age: 56 Year
  Sex: Female
  Weight: 73.4827 kg

DRUGS (4)
  1. NITROQUICK SUBLINGUAL TABLETS .4 MG ETHEX CORPORATION [Suspect]
     Indication: ANGINA PECTORIS
     Dosage: 1 TAB AS NEEDED FOR CHEST PAIN VARIES MONTHLY SL
     Route: 060
     Dates: start: 20041002, end: 20090119
  2. NITROQUICK SUBLINGUAL TABLETS .4 MG ETHEX CORPORATION [Suspect]
     Indication: AORTIC VALVE REPLACEMENT
     Dosage: 1 TAB AS NEEDED FOR CHEST PAIN VARIES MONTHLY SL
     Route: 060
     Dates: start: 20041002, end: 20090119
  3. NITROQUICK SUBLINGUAL TABLETS .4 MG ETHEX CORPORATION [Suspect]
     Indication: ARTERIOSCLEROSIS
     Dosage: 1 TAB AS NEEDED FOR CHEST PAIN VARIES MONTHLY SL
     Route: 060
     Dates: start: 20041002, end: 20090119
  4. NITROQUICK SUBLINGUAL TABLETS .4 MG ETHEX CORPORATION [Suspect]
     Dates: start: 20090119, end: 20090129

REACTIONS (4)
  - DRUG EFFECT DECREASED [None]
  - FOAMING AT MOUTH [None]
  - GLOSSODYNIA [None]
  - PRODUCT QUALITY ISSUE [None]
